FAERS Safety Report 9033192 (Version 1)
Quarter: 2013Q1

REPORT INFORMATION
  Report Type: Spontaneous
  Country: US (occurrence: US)
  Receive Date: 20130128
  Receipt Date: 20130128
  Transmission Date: 20140127
  Serious: No
  Sender: FDA-Public Use
  Company Number: US-ASTRAZENECA-2013SE05337

PATIENT
  Age: 51 Year
  Sex: Female

DRUGS (6)
  1. PRILOSEC OTC [Suspect]
     Indication: GASTROOESOPHAGEAL REFLUX DISEASE
     Dosage: 20 MG, 1 /DAY FOR 6 WEEKS
     Route: 048
  2. PRILOSEC OTC [Suspect]
     Indication: BARRETT^S OESOPHAGUS
     Dosage: 20 MG, 1 /DAY FOR 6 WEEKS
     Route: 048
  3. PRILOSEC OTC [Suspect]
     Indication: GASTROOESOPHAGEAL REFLUX DISEASE
  4. PRILOSEC OTC [Suspect]
     Indication: BARRETT^S OESOPHAGUS
  5. PRILOSEC [Suspect]
     Indication: GASTROOESOPHAGEAL REFLUX DISEASE
     Route: 048
  6. PRILOSEC [Suspect]
     Indication: BARRETT^S OESOPHAGUS
     Route: 048

REACTIONS (8)
  - Anxiety [Unknown]
  - Tinnitus [Unknown]
  - Sensation of foreign body [Unknown]
  - Decreased appetite [Unknown]
  - Chills [Unknown]
  - Dizziness [Unknown]
  - Nausea [Unknown]
  - Malaise [Unknown]
